FAERS Safety Report 4374600-1 (Version None)
Quarter: 2004Q2

REPORT INFORMATION
  Report Type: 
  Country: None (occurrence: None)
  Receive Date: 20040609
  Receipt Date: 20040331
  Transmission Date: 20050107
  Serious: Yes (Hospitalization)
  Sender: FDA-Public Use
  Company Number: US-MERCK-0404USA00028

PATIENT
  Age: 51 Year
  Sex: Female

DRUGS (4)
  1. LOTREL [Concomitant]
     Route: 065
  2. CALCIUM (UNSPECIFIED) [Concomitant]
     Route: 065
  3. PREMARIN [Concomitant]
     Route: 065
  4. VIOXX [Suspect]
     Indication: PAIN
     Route: 048
     Dates: end: 20020101

REACTIONS (2)
  - AORTIC THROMBOSIS [None]
  - CEREBROVASCULAR ACCIDENT [None]
